FAERS Safety Report 7396493 (Version 3)
Quarter: 2013Q1

REPORT INFORMATION
  Report Type: Spontaneous
  Country: IE (occurrence: IE)
  Receive Date: 20100521
  Receipt Date: 20130122
  Transmission Date: 20140127
  Serious: Yes (Death, Other)
  Sender: FDA-Public Use
  Company Number: IE-ROCHE-83462

PATIENT
  Age: 20 None
  Sex: Male
  Weight: 65 kg

DRUGS (4)
  1. ROACCUTANE [Suspect]
     Indication: ACNE
     Route: 048
     Dates: start: 19970222, end: 19970615
  2. FLIXOTIDE [Concomitant]
     Indication: ASTHMA
     Route: 065
  3. CLINDAMYCIN [Concomitant]
     Indication: ACNE
     Route: 061
  4. MINOCIN [Concomitant]
     Indication: ACNE
     Route: 065

REACTIONS (12)
  - Completed suicide [Fatal]
  - Depression [Unknown]
  - Personality change [Unknown]
  - Photophobia [Unknown]
  - Abnormal behaviour [Unknown]
  - Decreased appetite [Unknown]
  - Fatigue [Unknown]
  - Skin exfoliation [Unknown]
  - Cheilitis [Unknown]
  - Dry mouth [Unknown]
  - Lip dry [Unknown]
  - Dry skin [Unknown]
